FAERS Safety Report 24340553 (Version 2)
Quarter: 2024Q4

REPORT INFORMATION
  Report Type: Spontaneous
  Country: JP (occurrence: JP)
  Receive Date: 20240919
  Receipt Date: 20241002
  Transmission Date: 20250115
  Serious: No
  Sender: EISAI
  Company Number: JP-Eisai-EC-2024-174550

PATIENT
  Age: 54 Year
  Sex: Female

DRUGS (3)
  1. LENVIMA [Suspect]
     Active Substance: LENVATINIB
     Indication: Endometrial cancer
     Route: 048
     Dates: start: 20240709, end: 20240908
  2. LENVIMA [Suspect]
     Active Substance: LENVATINIB
     Route: 048
     Dates: start: 20240909
  3. KEYTRUDA [Suspect]
     Active Substance: PEMBROLIZUMAB
     Indication: Endometrial cancer
     Dosage: 3 COURSES
     Route: 041
     Dates: start: 20240709, end: 20240909

REACTIONS (1)
  - Thyroiditis acute [Not Recovered/Not Resolved]

NARRATIVE: CASE EVENT DATE: 20240909
